FAERS Safety Report 6298053-1 (Version None)
Quarter: 2009Q3

REPORT INFORMATION
  Report Type: 
  Country: None (occurrence: None)
  Receive Date: 20090804
  Receipt Date: 20090804
  Transmission Date: 20100115
  Serious: No
  Sender: FDA-Public Use
  Company Number: None

PATIENT
  Sex: Female
  Weight: 58.9676 kg

DRUGS (3)
  1. KENALOG [Suspect]
     Indication: SINUSITIS
     Dosage: ONCE, IM
     Route: 030
     Dates: start: 20090106, end: 20090106
  2. KENALOG [Suspect]
     Indication: UPPER RESPIRATORY TRACT INFECTION
     Dosage: ONCE, IM
     Route: 030
     Dates: start: 20090106, end: 20090106
  3. . [Concomitant]

REACTIONS (2)
  - SKIN ATROPHY [None]
  - SKIN DISORDER [None]
